FAERS Safety Report 16114673 (Version 1)
Quarter: 2019Q1

REPORT INFORMATION
  Report Type: Spontaneous
  Country: FR (occurrence: FR)
  Receive Date: 20190325
  Receipt Date: 20190325
  Transmission Date: 20190418
  Serious: Yes (Hospitalization)
  Sender: FDA-Public Use
  Company Number: FR-ROCHE-2286844

PATIENT
  Age: 19 Year
  Sex: Male

DRUGS (4)
  1. DIAZEPAM. [Suspect]
     Active Substance: DIAZEPAM
     Indication: INTENTIONAL OVERDOSE
     Route: 048
     Dates: start: 20190122, end: 20190122
  2. MIOREL (FRANCE) [Suspect]
     Active Substance: METHOCARBAMOL
     Indication: INTENTIONAL OVERDOSE
     Route: 048
     Dates: start: 20190122, end: 20190122
  3. KETOPROFENE [Suspect]
     Active Substance: KETOPROFEN
     Indication: INTENTIONAL OVERDOSE
     Route: 048
     Dates: start: 20190122, end: 20190122
  4. PARACETAMOL [Suspect]
     Active Substance: ACETAMINOPHEN
     Indication: INTENTIONAL OVERDOSE
     Route: 048
     Dates: start: 20190122, end: 20190122

REACTIONS (3)
  - Somnolence [Recovered/Resolved]
  - Hypotension [Recovered/Resolved]
  - Poisoning deliberate [Recovered/Resolved]

NARRATIVE: CASE EVENT DATE: 20190122
